FAERS Safety Report 20384120 (Version 1)
Quarter: 2022Q1

REPORT INFORMATION
  Report Type: Spontaneous
  Country: US (occurrence: None)
  Receive Date: 20220127
  Receipt Date: 20220127
  Transmission Date: 20220423
  Serious: Yes (unspecified)
  Sender: FDA-Public Use
  Company Number: None

PATIENT
  Age: 33 Year
  Sex: Female
  Weight: 116.1 kg

DRUGS (1)
  1. BAMLANIVIMAB\ETESEVIMAB [Suspect]
     Active Substance: BAMLANIVIMAB\ETESEVIMAB
     Indication: COVID-19
     Route: 042
     Dates: start: 20211222, end: 20211222

REACTIONS (8)
  - Erythema [None]
  - Erythema [None]
  - Ocular hyperaemia [None]
  - Chest discomfort [None]
  - Throat tightness [None]
  - Swollen tongue [None]
  - Lip swelling [None]
  - Musculoskeletal discomfort [None]

NARRATIVE: CASE EVENT DATE: 20211222
